FAERS Safety Report 24558573 (Version 1)
Quarter: 2024Q4

REPORT INFORMATION
  Report Type: Spontaneous
  Country: CN (occurrence: CN)
  Receive Date: 20241029
  Receipt Date: 20241029
  Transmission Date: 20250114
  Serious: Yes (Hospitalization)
  Sender: Haleon PLC
  Company Number: CN-HALEON-2204298

PATIENT
  Age: 16 Year
  Sex: Female
  Weight: 48 kg

DRUGS (2)
  1. IBUPROFEN [Suspect]
     Active Substance: IBUPROFEN
     Indication: Intentional self-injury
     Route: 048
     Dates: start: 20241019, end: 20241019
  2. AMOXICILLIN [Suspect]
     Active Substance: AMOXICILLIN
     Indication: Intentional self-injury
     Route: 048
     Dates: start: 20241019, end: 20241019

REACTIONS (6)
  - Nausea [Recovering/Resolving]
  - Vomiting [Recovering/Resolving]
  - Heart rate increased [Recovering/Resolving]
  - Overdose [Unknown]
  - Product use in unapproved indication [Unknown]
  - Suicide attempt [Unknown]

NARRATIVE: CASE EVENT DATE: 20241019
